FAERS Safety Report 25402217 (Version 1)
Quarter: 2025Q2

REPORT INFORMATION
  Report Type: Spontaneous
  Country: GB (occurrence: GB)
  Receive Date: 20250605
  Receipt Date: 20250605
  Transmission Date: 20250717
  Serious: Yes (Congenital Anomaly)
  Sender: NOVARTIS
  Company Number: GB-002147023-NVSC2025GB089003

PATIENT

DRUGS (4)
  1. COSENTYX [Suspect]
     Active Substance: SECUKINUMAB
     Indication: Foetal exposure during pregnancy
     Route: 064
  2. COSENTYX [Suspect]
     Active Substance: SECUKINUMAB
     Route: 064
  3. COSENTYX [Suspect]
     Active Substance: SECUKINUMAB
     Dosage: MATERNAL EXPOSURE DURING PREGNANCY: 150 MG, QMO
     Route: 064
     Dates: start: 20230825, end: 20250205
  4. MEFENAMIC ACID [Concomitant]
     Active Substance: MEFENAMIC ACID
     Indication: Foetal exposure during pregnancy
     Dosage: MATERNAL EXPOSURE DURING PREGNANCY: UNK, TID
     Route: 064

REACTIONS (2)
  - Congenital anomaly [Unknown]
  - Foetal exposure during pregnancy [Unknown]
